FAERS Safety Report 4693487-0 (Version None)
Quarter: 2005Q2

REPORT INFORMATION
  Report Type: 
  Country: None (occurrence: None)
  Receive Date: 20050615
  Receipt Date: 20050606
  Transmission Date: 20051028
  Serious: Yes (Hospitalization)
  Sender: FDA-Public Use
  Company Number: 200512356BCC

PATIENT
  Sex: Female
  Weight: 63.5036 kg

DRUGS (5)
  1. ALEVE [Suspect]
     Indication: PAIN
     Dosage: 220 MG, TOTAL DAILY, ORAL
     Route: 048
     Dates: start: 20000101
  2. CALCIUM GLUCONATE [Concomitant]
  3. CENTRUM [Concomitant]
  4. ST. JOSEPH [Concomitant]
  5. PRILOSEC [Concomitant]

REACTIONS (2)
  - BLOOD PRESSURE INCREASED [None]
  - DIZZINESS [None]
